FAERS Safety Report 16649222 (Version 6)
Quarter: 2021Q1

REPORT INFORMATION
  Report Type: Report from Study
  Country: US (occurrence: US)
  Receive Date: 20190730
  Receipt Date: 20210304
  Transmission Date: 20210419
  Serious: Yes (Hospitalization, Other)
  Sender: FDA-Public Use
  Company Number: PHEH2019US031433

PATIENT
  Age: 46 Year
  Sex: Female
  Weight: 78.91 kg

DRUGS (5)
  1. TREPROSTINIL. [Suspect]
     Active Substance: TREPROSTINIL
     Dosage: UNK (47 NG/KG/MIN, CONTINUOUS)
     Route: 042
     Dates: start: 20190508
  2. TREPROSTINIL. [Suspect]
     Active Substance: TREPROSTINIL
     Dosage: 47 NG/KG/MIN, CONTINUOUS
     Route: 065
     Dates: start: 20210105
  3. TADALAFIL. [Concomitant]
     Active Substance: TADALAFIL
     Indication: PRODUCT USED FOR UNKNOWN INDICATION
     Dosage: UNK
     Route: 065
  4. TREPROSTINIL. [Suspect]
     Active Substance: TREPROSTINIL
     Indication: PULMONARY ARTERIAL HYPERTENSION
     Dosage: 47 NG/KG/MIN
     Route: 042
     Dates: start: 20190508
  5. TREPROSTINIL. [Suspect]
     Active Substance: TREPROSTINIL
     Dosage: 47 NG/KG/MIN
     Route: 042
     Dates: start: 20190508

REACTIONS (7)
  - Headache [Unknown]
  - Device infusion issue [Unknown]
  - Nausea [Unknown]
  - Restless legs syndrome [Unknown]
  - Haemorrhage [Recovered/Resolved]
  - Cardiogenic shock [Unknown]
  - Infusion site haemorrhage [Unknown]

NARRATIVE: CASE EVENT DATE: 20210218
